FAERS Safety Report 7538009-1 (Version None)
Quarter: 2011Q2

REPORT INFORMATION
  Report Type: 
  Country: None (occurrence: None)
  Receive Date: 20110609
  Receipt Date: 20110603
  Transmission Date: 20111010
  Serious: Yes (Other)
  Sender: FDA-Public Use
  Company Number: IT-PFIZER INC-2011121732

PATIENT
  Age: 33 Year
  Sex: Male

DRUGS (1)
  1. DOXYCYCLINE HYCLATE [Suspect]
     Indication: ARTHROPOD BITE
     Dosage: 200 MG, 1X/DAY
     Route: 048
     Dates: start: 20110525, end: 20110525

REACTIONS (2)
  - OESOPHAGEAL DISORDER [None]
  - OESOPHAGEAL OBSTRUCTION [None]
